FAERS Safety Report 12556312 (Version 1)
Quarter: 2016Q3

REPORT INFORMATION
  Report Type: Spontaneous
  Country: US (occurrence: None)
  Receive Date: 20160713
  Receipt Date: 20160713
  Transmission Date: 20161109
  Serious: No
  Sender: FDA-Public Use
  Company Number: None

PATIENT
  Age: 55 Year
  Sex: Female
  Weight: 83.7 kg

DRUGS (3)
  1. FISH OIL [Concomitant]
     Active Substance: FISH OIL
  2. SALINE BREAST IMPLANTS [Concomitant]
  3. LEVOTHYROXINE - GENERIC FOR SYNTHROID [Suspect]
     Active Substance: LEVOTHYROXINE SODIUM
     Indication: AUTOIMMUNE THYROIDITIS
     Dosage: 1 PILL = 125 MCG 1 X PER DAY IN THE AM BEFORE BREAKFAST ORAL
     Route: 048
     Dates: start: 200201, end: 201605

REACTIONS (4)
  - Memory impairment [None]
  - Heart rate irregular [None]
  - Mental impairment [None]
  - Stress [None]
